FAERS Safety Report 7804412-5 (Version None)
Quarter: 2011Q4

REPORT INFORMATION
  Report Type: 
  Country: None (occurrence: None)
  Receive Date: 20111010
  Receipt Date: 20110927
  Transmission Date: 20120403
  Serious: Yes (Other)
  Sender: FDA-Public Use
  Company Number: US-BAYER-2011-092387

PATIENT
  Sex: Female

DRUGS (2)
  1. YASMIN [Suspect]
     Dosage: UNK
     Dates: start: 20080101, end: 20081201
  2. YAZ [Suspect]
     Dosage: UNK
     Dates: start: 20080101, end: 20081201

REACTIONS (4)
  - PAIN [None]
  - THROMBOSIS [None]
  - RETINAL VEIN OCCLUSION [None]
  - INJURY [None]
